FAERS Safety Report 14727642 (Version 1)
Quarter: 2018Q2

REPORT INFORMATION
  Report Type: Report from Study
  Country: US (occurrence: US)
  Receive Date: 20180406
  Receipt Date: 20180406
  Transmission Date: 20180711
  Serious: Yes (Hospitalization)
  Sender: FDA-Public Use
  Company Number: US-TEVA-504496USA

PATIENT
  Age: 70 Year
  Sex: Male
  Weight: 96.02 kg

DRUGS (2)
  1. TAFAMIDIS MEGLUMINE;PLACEBO [Suspect]
     Active Substance: TAFAMIDIS MEGLUMINE
     Indication: CARDIOMYOPATHY
     Route: 065
     Dates: start: 20140707, end: 20150819
  2. WARFARIN [Suspect]
     Active Substance: WARFARIN
     Indication: ATRIAL FIBRILLATION
     Dosage: 5 YEARS AGO, 5MG SUNDAY
     Route: 065
     Dates: start: 20120411, end: 20140805

REACTIONS (1)
  - Haematuria [Recovered/Resolved]

NARRATIVE: CASE EVENT DATE: 20140801
